FAERS Safety Report 5513159-X (Version None)
Quarter: 2007Q4

REPORT INFORMATION
  Report Type: 
  Country: None (occurrence: None)
  Receive Date: 20071112
  Receipt Date: 20070328
  Transmission Date: 20080405
  Serious: Yes (Death)
  Sender: FDA-Public Use
  Company Number: US-BRISTOL-MYERS SQUIBB COMPANY-13675434

PATIENT
  Age: 38 Year
  Sex: Male

DRUGS (7)
  1. SUSTIVA [Suspect]
     Indication: HIV INFECTION
     Route: 048
     Dates: start: 20050211, end: 20070115
  2. ATRIPLA [Concomitant]
     Route: 048
     Dates: start: 20060804
  3. TRUVADA [Concomitant]
     Route: 048
     Dates: start: 20050211
  4. LISINOPRIL [Concomitant]
     Route: 048
  5. BENADRYL [Concomitant]
  6. VALTREX [Concomitant]
     Route: 048
     Dates: start: 20040503
  7. XANAX [Concomitant]
     Route: 048

REACTIONS (1)
  - COMPLETED SUICIDE [None]
